FAERS Safety Report 11467325 (Version 1)
Quarter: 2015Q3

REPORT INFORMATION
  Report Type: Report from Study
  Country: CA (occurrence: CA)
  Receive Date: 20150908
  Receipt Date: 20150908
  Transmission Date: 20151125
  Serious: Yes (Life-Threatening, Hospitalization, Other)
  Sender: FDA-Public Use
  Company Number: CA-ABBVIE-15K-028-1450793-00

PATIENT
  Sex: Female
  Weight: 50 kg

DRUGS (1)
  1. HUMIRA [Suspect]
     Active Substance: ADALIMUMAB
     Indication: CROHN^S DISEASE
     Route: 058
     Dates: start: 20140812

REACTIONS (4)
  - Colitis ulcerative [Recovered/Resolved]
  - Confusional state [Recovered/Resolved]
  - Drug ineffective [Unknown]
  - Pneumonia [Not Recovered/Not Resolved]

NARRATIVE: CASE EVENT DATE: 2015
